FAERS Safety Report 17531783 (Version 5)
Quarter: 2021Q2

REPORT INFORMATION
  Report Type: Spontaneous
  Country: CA (occurrence: CA)
  Receive Date: 20200312
  Receipt Date: 20210624
  Transmission Date: 20210716
  Serious: Yes (Hospitalization, Other)
  Sender: FDA-Public Use
  Company Number: CA-CELLTRION INC.-2019CA028003

PATIENT

DRUGS (10)
  1. ENTOCORT [Concomitant]
     Active Substance: BUDESONIDE
     Dosage: 9 MG, DAILY
     Route: 048
  2. INFLECTRA [Suspect]
     Active Substance: INFLIXIMAB-DYYB
     Dosage: 350 MG EVERY 0, 2, 6 WEEKS THEN EVERY 8 WEEKS
     Route: 042
     Dates: start: 20200102
  3. PREDNISONE. [Concomitant]
     Active Substance: PREDNISONE
     Dosage: 35 MG?TAPER, DAILY
     Route: 048
  4. INFLECTRA [Suspect]
     Active Substance: INFLIXIMAB-DYYB
     Dosage: 350 MG EVERY 0, 2, 6 WEEKS THEN EVERY 8 WEEKS
     Route: 042
     Dates: start: 20210421
  5. INFLECTRA [Suspect]
     Active Substance: INFLIXIMAB-DYYB
     Dosage: 350 MG EVERY 0, 2, 6 WEEKS THEN EVERY 8 WEEKS
     Route: 042
     Dates: start: 20200227
  6. INFLECTRA [Suspect]
     Active Substance: INFLIXIMAB-DYYB
     Indication: CROHN^S DISEASE
     Dosage: 350 MG EVERY 0, 2, 6 WEEKS THEN EVERY 8 WEEKS
     Route: 042
     Dates: start: 20191121
  7. INFLECTRA [Suspect]
     Active Substance: INFLIXIMAB-DYYB
     Dosage: 350 MG EVERY 0, 2, 6 WEEKS THEN EVERY 8 WEEKS
     Route: 042
     Dates: start: 20191205
  8. INFLECTRA [Suspect]
     Active Substance: INFLIXIMAB-DYYB
     Dosage: 350 MG EVERY 0, 2, 6 WEEKS THEN EVERY 8 WEEKS
     Route: 042
     Dates: start: 20200818
  9. INFLECTRA [Suspect]
     Active Substance: INFLIXIMAB-DYYB
     Dosage: 350 MG EVERY 0, 2, 6 WEEKS THEN EVERY 8 WEEKS
     Route: 042
     Dates: start: 20201208
  10. IMURAN [Concomitant]
     Active Substance: AZATHIOPRINE
     Dosage: 50 MG, 1X/DAY
     Route: 048

REACTIONS (9)
  - Headache [Unknown]
  - Rash [Unknown]
  - Loss of personal independence in daily activities [Unknown]
  - Joint swelling [Unknown]
  - Condition aggravated [Not Recovered/Not Resolved]
  - Joint range of motion decreased [Unknown]
  - Bacterial sepsis [Unknown]
  - Bowel movement irregularity [Unknown]
  - Therapeutic response shortened [Unknown]

NARRATIVE: CASE EVENT DATE: 20191212
